FAERS Safety Report 19308908 (Version 1)
Quarter: 2021Q2

REPORT INFORMATION
  Report Type: Report from Study
  Country: US (occurrence: US)
  Receive Date: 20210526
  Receipt Date: 20210526
  Transmission Date: 20210717
  Serious: Yes (Other)
  Sender: FDA-Public Use
  Company Number: US-BAYER-2021-143230

PATIENT
  Age: 82 Year
  Sex: Male

DRUGS (1)
  1. STIVARGA [Suspect]
     Active Substance: REGORAFENIB
     Indication: LUNG NEOPLASM MALIGNANT
     Dosage: DAILY DOSE 80 MG FOR 14 DAYS OF 28 DAY
     Route: 048
     Dates: start: 20210514, end: 20210515

REACTIONS (4)
  - Off label use [None]
  - Fall [Unknown]
  - Foot fracture [Unknown]
  - Dizziness [Unknown]

NARRATIVE: CASE EVENT DATE: 20210516
